FAERS Safety Report 5880023-6 (Version None)
Quarter: 2008Q3

REPORT INFORMATION
  Report Type: 
  Country: None (occurrence: None)
  Receive Date: 20080912
  Receipt Date: 20080902
  Transmission Date: 20090109
  Serious: Yes (Other)
  Sender: FDA-Public Use
  Company Number: US-PFIZER INC-2008066293

PATIENT
  Sex: Female
  Weight: 68 kg

DRUGS (14)
  1. LYRICA [Suspect]
     Indication: FIBROMYALGIA
     Route: 048
     Dates: start: 20080618, end: 20080701
  2. PROPACET 100 [Concomitant]
  3. CLONAZEPAM [Concomitant]
  4. SIMVASTATIN [Concomitant]
  5. FLUOXETINE [Concomitant]
  6. FOLIC ACID [Concomitant]
  7. XANAX [Concomitant]
  8. FLEXERIL [Concomitant]
  9. METHOTREXATE [Concomitant]
  10. LORTAB [Concomitant]
  11. LISINOPRIL [Concomitant]
  12. HYDROCHLOROTHIAZIDE [Concomitant]
  13. PROZAC [Concomitant]
  14. PRILOSEC [Concomitant]

REACTIONS (4)
  - FLUID RETENTION [None]
  - MUSCLE TIGHTNESS [None]
  - OEDEMA PERIPHERAL [None]
  - PAIN [None]
